FAERS Safety Report 5453938-0 (Version None)
Quarter: 2007Q3

REPORT INFORMATION
  Report Type: 
  Country: None (occurrence: None)
  Receive Date: 20070917
  Receipt Date: 20070904
  Transmission Date: 20080115
  Serious: Yes (Hospitalization)
  Sender: FDA-Public Use
  Company Number: ES-AMGEN-US203264

PATIENT
  Sex: Male

DRUGS (6)
  1. ENBREL [Suspect]
     Indication: JUVENILE ARTHRITIS
     Dosage: UNKNOWN
     Route: 065
     Dates: start: 20040615, end: 20040916
  2. OMEPRAZOLE [Concomitant]
     Route: 065
  3. CORTICOSTEROID NOS [Concomitant]
     Route: 065
  4. ACFOL [Concomitant]
     Route: 065
  5. METHOTREXATE [Concomitant]
     Route: 065
  6. NSAID'S [Concomitant]
     Route: 065

REACTIONS (1)
  - TUBERCULOSIS [None]
